FAERS Safety Report 17623486 (Version 1)
Quarter: 2020Q2

REPORT INFORMATION
  Report Type: Spontaneous
  Country: IE (occurrence: IE)
  Receive Date: 20200403
  Receipt Date: 20200403
  Transmission Date: 20200713
  Serious: Yes (Hospitalization, Other)
  Sender: FDA-Public Use
  Company Number: IE-009507513-2003IRL008674

PATIENT
  Age: 30 Year
  Sex: Female

DRUGS (1)
  1. IMPLANON [Suspect]
     Active Substance: ETONOGESTREL
     Dosage: 1 DOSAGE FORM
     Route: 059
     Dates: start: 20190207

REACTIONS (5)
  - Device dislocation [Recovered/Resolved]
  - Frustration tolerance decreased [Unknown]
  - Complication of device removal [Recovered/Resolved]
  - General anaesthesia [Recovered/Resolved]
  - Malaise [Unknown]
